FAERS Safety Report 5231196-X (Version None)
Quarter: 2007Q1

REPORT INFORMATION
  Report Type: 
  Country: None (occurrence: None)
  Receive Date: 20070206
  Receipt Date: 20070129
  Transmission Date: 20070707
  Serious: Yes (Disabling)
  Sender: FDA-Public Use
  Company Number: 2007AP00752

PATIENT
  Age: 707 Month
  Sex: Male
  Weight: 106 kg

DRUGS (5)
  1. IRESSA [Suspect]
     Indication: NON-SMALL CELL LUNG CANCER
     Route: 048
     Dates: start: 20060501, end: 20070115
  2. IRESSA [Suspect]
     Indication: ADENOCARCINOMA
     Route: 048
     Dates: start: 20060501, end: 20070115
  3. IRESSA [Suspect]
     Indication: METASTASES TO CENTRAL NERVOUS SYSTEM
     Route: 048
     Dates: start: 20060501, end: 20070115
  4. GEMCITABINE [Concomitant]
     Dosage: 4 COURSES
     Dates: start: 20051201
  5. CISPLATIN [Concomitant]
     Dosage: 4 COURSES
     Dates: start: 20051201

REACTIONS (1)
  - MUSCULAR WEAKNESS [None]
